FAERS Safety Report 4522264-6 (Version None)
Quarter: 2004Q4

REPORT INFORMATION
  Report Type: 
  Country: None (occurrence: None)
  Receive Date: 20041207
  Receipt Date: 20041122
  Transmission Date: 20050328
  Serious: Yes (Other)
  Sender: FDA-Public Use
  Company Number: 210838

PATIENT
  Sex: Male

DRUGS (4)
  1. RAPTIVA [Suspect]
     Indication: PSORIASIS
     Dosage: 1 MG/KG, 1/WEEK, SUBCUTANEOUS
     Route: 058
     Dates: start: 20040527, end: 20040812
  2. ALLOPURINOL [Concomitant]
  3. MODURETIC 5-50 [Concomitant]
  4. SALBUTAMOL (ALBUTEROL, ALBUTEROL SULFATE) [Concomitant]

REACTIONS (10)
  - BOVINE TUBERCULOSIS [None]
  - CARDIOMEGALY [None]
  - HYPOKALAEMIA [None]
  - INFLAMMATION [None]
  - INTERSTITIAL LUNG DISEASE [None]
  - LUNG DISORDER [None]
  - MYCOBACTERIAL INFECTION [None]
  - PLEURAL ADHESION [None]
  - SPLENOMEGALY [None]
  - SQUAMOUS CELL CARCINOMA [None]
